FAERS Safety Report 9695558 (Version 1)
Quarter: 2013Q4

REPORT INFORMATION
  Report Type: Spontaneous
  Country: US (occurrence: US)
  Receive Date: 20131119
  Receipt Date: 20131119
  Transmission Date: 20140711
  Serious: Yes (Other)
  Sender: FDA-Public Use
  Company Number: US-PFIZER INC-2013328472

PATIENT
  Age: 25 Year
  Sex: Female
  Weight: 54.4 kg

DRUGS (2)
  1. DEPO-PROVERA [Suspect]
     Indication: CONTRACEPTION
     Dosage: UNK
     Dates: start: 2007
  2. DEPO-PROVERA [Suspect]
     Dosage: UNK, EVERY 3 MONTHS
     Dates: start: 201307

REACTIONS (1)
  - Uterine haemorrhage [Not Recovered/Not Resolved]
